FAERS Safety Report 11746104 (Version 1)
Quarter: 2015Q4

REPORT INFORMATION
  Report Type: Spontaneous
  Country: GB (occurrence: GB)
  Receive Date: 20151117
  Receipt Date: 20151117
  Transmission Date: 20160304
  Serious: Yes (Hospitalization)
  Sender: FDA-Public Use
  Company Number: GB-BIOGENIDEC-2015BI150264

PATIENT
  Sex: Female

DRUGS (1)
  1. TECFIDERA [Suspect]
     Active Substance: DIMETHYL FUMARATE
     Indication: PRODUCT USED FOR UNKNOWN INDICATION

REACTIONS (7)
  - White blood cell count abnormal [Unknown]
  - Feeling abnormal [Unknown]
  - Burning sensation [Unknown]
  - Syncope [Unknown]
  - Fatigue [Unknown]
  - Hypotension [Unknown]
  - Therapy cessation [Unknown]
